FAERS Safety Report 4980832-1 (Version None)
Quarter: 2006Q2

REPORT INFORMATION
  Report Type: 
  Country: None (occurrence: None)
  Receive Date: 20060418
  Receipt Date: 20060405
  Transmission Date: 20061013
  Serious: Yes (Other)
  Sender: FDA-Public Use
  Company Number: 2006048087

PATIENT
  Sex: Female

DRUGS (16)
  1. SOLU-MEDROL [Suspect]
     Indication: MULTIPLE SCLEROSIS
     Dosage: UNKNOWN
     Route: 065
  2. LYRICA [Suspect]
     Indication: DIABETIC NEUROPATHY
     Dosage: 75 MG (75 MG, 1 IN 1 D), UNKNOWN
     Route: 065
     Dates: start: 20060101
  3. INSULIN [Suspect]
     Indication: DIABETES MELLITUS
     Dosage: UNKNOWN
     Route: 065
  4. ALL OTHER THERAPEUTIC PRODUCTS (ALL OTHER THERAPEUTIC PRODUCTS) [Suspect]
     Indication: MULTIPLE SCLEROSIS
     Dosage: UNKNOWN
     Route: 065
  5. THEOPHYLLINE [Concomitant]
  6. MONTELUKAST (MONTELUKAST) [Concomitant]
  7. ADVAIR DISKUS 100/50 [Concomitant]
  8. LASIX [Concomitant]
  9. DETROL [Concomitant]
  10. SEROQUEL [Concomitant]
  11. LEXAPRO [Concomitant]
  12. ZANAFLEX [Concomitant]
  13. FLEXERIL [Concomitant]
  14. HUMALOG [Concomitant]
  15. ADVIL [Concomitant]
  16. AVAPRO [Concomitant]

REACTIONS (13)
  - CATARACT [None]
  - DIABETES MELLITUS [None]
  - DIABETIC NEUROPATHY [None]
  - DRUG INEFFECTIVE [None]
  - DRY EYE [None]
  - DRY MOUTH [None]
  - FEELING ABNORMAL [None]
  - GASTROOESOPHAGEAL REFLUX DISEASE [None]
  - MOUTH ULCERATION [None]
  - PAIN IN EXTREMITY [None]
  - THIRST [None]
  - VISION BLURRED [None]
  - WEIGHT INCREASED [None]
